FAERS Safety Report 13449627 (Version 14)
Quarter: 2018Q4

REPORT INFORMATION
  Report Type: Report from Study
  Country: US (occurrence: US)
  Receive Date: 20170417
  Receipt Date: 20181024
  Transmission Date: 20190204
  Serious: Yes (Hospitalization, Disabling, Other)
  Sender: FDA-Public Use
  Company Number: US-ACTELION-A-NJ2017-152523

PATIENT
  Age: 45 Year
  Sex: Female

DRUGS (25)
  1. RIFAXIMIN. [Concomitant]
     Active Substance: RIFAXIMIN
  2. MAGNESIUM OXIDE. [Concomitant]
     Active Substance: MAGNESIUM OXIDE
  3. HUMULIN R [Concomitant]
     Active Substance: INSULIN HUMAN
  4. CELLCEPT [Concomitant]
     Active Substance: MYCOPHENOLATE MOFETIL\MYCOPHENOLATE MOFETIL HYDROCHLORIDE
     Dosage: 500 MG, BID
     Route: 048
  5. OMEPRAZOLE. [Concomitant]
     Active Substance: OMEPRAZOLE
  6. ATORVASTATIN [Concomitant]
     Active Substance: ATORVASTATIN
     Dosage: 20 UNK, UNK
  7. FUROSEMIDE. [Concomitant]
     Active Substance: FUROSEMIDE
     Dosage: 40 MG, BID
  8. URSODIOL. [Concomitant]
     Active Substance: URSODIOL
     Dosage: 250/500, MG BID
     Route: 048
  9. SODIUM BICARBONATE. [Concomitant]
     Active Substance: SODIUM BICARBONATE
  10. CIPRO [Concomitant]
     Active Substance: CIPROFLOXACIN HYDROCHLORIDE
  11. VITAMIN B1 [Concomitant]
     Active Substance: THIAMINE HYDROCHLORIDE
  12. LANTUS [Concomitant]
     Active Substance: INSULIN GLARGINE
  13. ZINC SULFATE [Concomitant]
     Active Substance: ZINC SULFATE\ZINC SULFATE ANHYDROUS
  14. EPIVIR HBV [Concomitant]
     Active Substance: LAMIVUDINE
     Dosage: 10 MG, QD
  15. OPSUMIT [Suspect]
     Active Substance: MACITENTAN
     Indication: PULMONARY ARTERIAL HYPERTENSION
     Dosage: 10 MG, QD
     Route: 048
     Dates: start: 20160229, end: 201810
  16. SPIRONOLACTONE. [Concomitant]
     Active Substance: SPIRONOLACTONE
     Dosage: 25 MG, BID
     Route: 048
  17. LAMIVUDINE. [Concomitant]
     Active Substance: LAMIVUDINE
  18. ASPIRIN. [Concomitant]
     Active Substance: ASPIRIN
  19. EPOETIN [Concomitant]
     Active Substance: ERYTHROPOIETIN
  20. XIFAXAN [Concomitant]
     Active Substance: RIFAXIMIN
     Dosage: 550 MG, BID
     Route: 048
  21. VITAMIN D2 [Concomitant]
     Active Substance: ERGOCALCIFEROL
  22. SILDENAFIL. [Concomitant]
     Active Substance: SILDENAFIL
     Dosage: 60 UNK, TID
  23. MYCOFENOLAAT MOFETIL [Concomitant]
     Active Substance: MYCOPHENOLATE MOFETIL
  24. MIDODRINE [Concomitant]
     Active Substance: MIDODRINE
     Dosage: 150 MG, TID
     Route: 048
  25. NORCO [Concomitant]
     Active Substance: ACETAMINOPHEN\HYDROCODONE BITARTRATE

REACTIONS (31)
  - Urinary tract infection [Unknown]
  - Hypokalaemia [Unknown]
  - Blood potassium decreased [Unknown]
  - Hepatic encephalopathy [Unknown]
  - Acute kidney injury [Unknown]
  - Acidosis [Unknown]
  - Cholangiostomy [Unknown]
  - Abdominal pain [Unknown]
  - Biliary dilatation [Unknown]
  - Bile duct stone [Unknown]
  - Renal impairment [Unknown]
  - Septic shock [Unknown]
  - Respiratory failure [Unknown]
  - Ammonia increased [Recovered/Resolved]
  - Electrolyte imbalance [Unknown]
  - Haematocrit decreased [Unknown]
  - Lower gastrointestinal haemorrhage [Unknown]
  - Condition aggravated [Unknown]
  - Vomiting [Recovered/Resolved]
  - Cholangitis [Unknown]
  - Bile duct stenosis [Unknown]
  - Confusional state [Recovering/Resolving]
  - Rectal haemorrhage [Unknown]
  - Diarrhoea haemorrhagic [Unknown]
  - Hepatic failure [Unknown]
  - Blood bicarbonate decreased [Unknown]
  - Blood creatine increased [Unknown]
  - Anaemia of chronic disease [Not Recovered/Not Resolved]
  - Transfusion [Unknown]
  - Nausea [Recovered/Resolved]
  - Haemoglobin decreased [Unknown]

NARRATIVE: CASE EVENT DATE: 201612
